FAERS Safety Report 24444391 (Version 2)
Quarter: 2024Q4

REPORT INFORMATION
  Report Type: Report from Study
  Country: US (occurrence: US)
  Receive Date: 20241016
  Receipt Date: 20241017
  Transmission Date: 20250115
  Serious: No
  Sender: ROCHE
  Company Number: US-ROCHE-2788121

PATIENT
  Age: 62 Year
  Sex: Male
  Weight: 124.74 kg

DRUGS (14)
  1. RITUXAN [Suspect]
     Active Substance: RITUXIMAB
     Indication: Rheumatoid vasculitis
     Dosage: ONGOING: YES, IV AT 0 AND 2 WEEK AND EVERY 5 MONTHS IN PHYSICIAN OFFICE
     Route: 042
     Dates: start: 2017
  2. RITUXAN [Suspect]
     Active Substance: RITUXIMAB
     Indication: Rheumatoid arthritis
  3. RITUXAN [Suspect]
     Active Substance: RITUXIMAB
     Indication: Arteritis
  4. RITUXAN [Suspect]
     Active Substance: RITUXIMAB
     Indication: Anti-neutrophil cytoplasmic antibody positive vasculitis
  5. ASPIRIN [Concomitant]
     Active Substance: ASPIRIN
     Indication: Myocardial infarction
     Dosage: ONGOING: UNKNOWN
     Route: 048
  6. ATORVASTATIN [Concomitant]
     Active Substance: ATORVASTATIN
     Dosage: ONGOING: UNKNOWN
     Route: 048
  7. ELIQUIS [Concomitant]
     Active Substance: APIXABAN
     Dosage: ONGOING: UNKNOWN
     Route: 048
  8. CHLORTHALIDONE [Concomitant]
     Active Substance: CHLORTHALIDONE
     Dosage: ONGOING: UNKNOWN
     Route: 048
  9. HYDROXYCHLOROQUINE [Concomitant]
     Active Substance: HYDROXYCHLOROQUINE
     Dosage: ONGOING: UNKNOWN
     Route: 048
  10. LISINOPRIL [Concomitant]
     Active Substance: LISINOPRIL
     Dosage: ONGOING: UNKNOWN
     Route: 048
  11. METOPROLOL SUCCINATE [Concomitant]
     Active Substance: METOPROLOL SUCCINATE
     Dosage: ONGOING: UNKNOWN
     Route: 048
  12. OMEPRAZOLE [Concomitant]
     Active Substance: OMEPRAZOLE
     Dosage: ONGOING: UNKNOWN
     Route: 048
  13. OXCARBAZEPINE [Concomitant]
     Active Substance: OXCARBAZEPINE
     Dosage: ONGOING: UNKNOWN
     Route: 048
  14. LYRICA [Concomitant]
     Active Substance: PREGABALIN

REACTIONS (4)
  - Gait disturbance [Not Recovered/Not Resolved]
  - Loss of personal independence in daily activities [Not Recovered/Not Resolved]
  - Dysaesthesia [Unknown]
  - Therapeutic response shortened [Unknown]
